FAERS Safety Report 9293076 (Version 1)
Quarter: 2013Q2

REPORT INFORMATION
  Report Type: Spontaneous
  Country: US (occurrence: None)
  Receive Date: 20130515
  Receipt Date: 20130515
  Transmission Date: 20140414
  Serious: Yes (Hospitalization)
  Sender: FDA-Public Use
  Company Number: None

PATIENT
  Age: 59 Year
  Sex: Female
  Weight: 78 kg

DRUGS (2)
  1. CARBOPLATIN (241240) [Suspect]
  2. PACLITAXEL (TAXOL) (673089) [Suspect]

REACTIONS (5)
  - Febrile neutropenia [None]
  - Chest pain [None]
  - Dyspnoea [None]
  - Respiratory failure [None]
  - Condition aggravated [None]
